FAERS Safety Report 19877594 (Version 1)
Quarter: 2021Q3

REPORT INFORMATION
  Report Type: Report from Study
  Country: HN (occurrence: HN)
  Receive Date: 20210923
  Receipt Date: 20210923
  Transmission Date: 20211014
  Serious: Yes (Hospitalization)
  Sender: FDA-Public Use
  Company Number: NVSC2021HN195165

PATIENT
  Age: 74 Year
  Sex: Female

DRUGS (2)
  1. PROCORALAN [Concomitant]
     Active Substance: IVABRADINE
     Indication: PRODUCT USED FOR UNKNOWN INDICATION
     Dosage: UNK
     Route: 065
  2. EXFORGE HCT [Suspect]
     Active Substance: AMLODIPINE BESYLATE\HYDROCHLOROTHIAZIDE\VALSARTAN
     Indication: HYPERTENSION
     Dosage: 1 DF, QD
     Route: 048

REACTIONS (4)
  - COVID-19 [Recovered/Resolved with Sequelae]
  - Arthropathy [Unknown]
  - Ill-defined disorder [Unknown]
  - Bone disorder [Unknown]

NARRATIVE: CASE EVENT DATE: 20200628
